FAERS Safety Report 20844969 (Version 2)
Quarter: 2022Q4

REPORT INFORMATION
  Report Type: Spontaneous
  Country: US (occurrence: US)
  Receive Date: 20220518
  Receipt Date: 20221214
  Transmission Date: 20230112
  Serious: No
  Sender: FDA-Public Use
  Company Number: US-PFIZER INC-202200663417

PATIENT
  Age: 24 Year
  Sex: Female

DRUGS (4)
  1. XELJANZ XR [Suspect]
     Active Substance: TOFACITINIB CITRATE
     Dosage: 11 MG, DAILY
     Route: 048
     Dates: start: 2018
  2. FOLIC ACID [Concomitant]
     Active Substance: FOLIC ACID
  3. METHOTREXATE [Concomitant]
     Active Substance: METHOTREXATE
  4. SPRINTEC [Concomitant]
     Active Substance: ETHINYL ESTRADIOL\NORGESTIMATE

REACTIONS (2)
  - Nasopharyngitis [Recovered/Resolved]
  - Fungal infection [Recovered/Resolved]

NARRATIVE: CASE EVENT DATE: 20210101
